FAERS Safety Report 16482952 (Version 1)
Quarter: 2019Q2

REPORT INFORMATION
  Report Type: Spontaneous
  Country: SE (occurrence: SE)
  Receive Date: 20190627
  Receipt Date: 20190627
  Transmission Date: 20190711
  Serious: Yes (Hospitalization)
  Sender: FDA-Public Use
  Company Number: SE-TEVA-2019-SE-1069938

PATIENT
  Sex: Male

DRUGS (1)
  1. PROMETHAZINE [Suspect]
     Active Substance: PROMETHAZINE\PROMETHAZINE HYDROCHLORIDE
     Dosage: 25 MG X 50-60 TABLETS
     Route: 048
     Dates: start: 20190222, end: 20190222

REACTIONS (5)
  - Intentional overdose [Unknown]
  - Depressed mood [Unknown]
  - Intentional self-injury [Unknown]
  - Dysarthria [Unknown]
  - Crying [Unknown]

NARRATIVE: CASE EVENT DATE: 20190222
